FAERS Safety Report 7541731-4 (Version None)
Quarter: 2011Q2

REPORT INFORMATION
  Report Type: 
  Country: None (occurrence: None)
  Receive Date: 20110613
  Receipt Date: 20110602
  Transmission Date: 20111010
  Serious: No
  Sender: FDA-Public Use
  Company Number: US-JNJFOC-20110601654

PATIENT
  Sex: Male
  Weight: 90.72 kg

DRUGS (6)
  1. KLONOPIN [Concomitant]
     Route: 065
  2. ARTANE [Concomitant]
     Route: 065
  3. PRAZOSIN HCL [Concomitant]
     Route: 065
  4. VALPROATE SODIUM [Concomitant]
     Indication: BIPOLAR DISORDER
     Route: 065
  5. CELEXA [Concomitant]
     Indication: DEPRESSION
     Route: 065
  6. INVEGA SUSTENNA [Suspect]
     Indication: SCHIZOAFFECTIVE DISORDER
     Route: 030
     Dates: start: 20100913

REACTIONS (1)
  - INJECTION SITE NODULE [None]
